FAERS Safety Report 23813144 (Version 1)
Quarter: 2024Q2

REPORT INFORMATION
  Report Type: Spontaneous
  Country: US (occurrence: US)
  Receive Date: 20240503
  Receipt Date: 20240503
  Transmission Date: 20240715
  Serious: No
  Sender: FDA-Public Use
  Company Number: US-AMNEAL PHARMACEUTICALS-2023-AMRX-04647

PATIENT
  Sex: Female

DRUGS (2)
  1. VIGABATRIN [Suspect]
     Active Substance: VIGABATRIN
     Indication: Epilepsy
     Dosage: 500 MG/PACKET
     Route: 048
     Dates: end: 202310
  2. TOPIRAMATE [Concomitant]
     Active Substance: TOPIRAMATE
     Indication: Learning disorder
     Dosage: UNK
     Route: 065

REACTIONS (1)
  - Learning disorder [Not Recovered/Not Resolved]
